FAERS Safety Report 9478359 (Version 1)
Quarter: 2013Q3

REPORT INFORMATION
  Report Type: Spontaneous
  Country: FR (occurrence: FR)
  Receive Date: 20130827
  Receipt Date: 20130827
  Transmission Date: 20140515
  Serious: Yes (Disabling)
  Sender: FDA-Public Use
  Company Number: FR-TEVA-428142ISR

PATIENT
  Age: 66 Year
  Sex: Female

DRUGS (5)
  1. AZILECT [Suspect]
     Indication: PARKINSON^S DISEASE
     Dosage: 1 MILLIGRAM DAILY;
     Route: 048
     Dates: start: 20130501, end: 20130517
  2. STALEVO [Concomitant]
  3. MANTADIX [Concomitant]
  4. SINEMET LP [Concomitant]
     Dosage: SINEMET AND SINEMET LP
  5. REQUIP LP [Concomitant]

REACTIONS (3)
  - Arthralgia [Recovered/Resolved]
  - Muscle rupture [Recovered/Resolved with Sequelae]
  - Pain in extremity [Not Recovered/Not Resolved]
